FAERS Safety Report 7521642-0 (Version None)
Quarter: 2011Q2

REPORT INFORMATION
  Report Type: 
  Country: None (occurrence: None)
  Receive Date: 20110603
  Receipt Date: 20110523
  Transmission Date: 20111010
  Serious: Yes (Other)
  Sender: FDA-Public Use
  Company Number: CA-JNJFOC-20110512253

PATIENT
  Age: 16 Year
  Sex: Female

DRUGS (15)
  1. RISPERIDONE [Suspect]
     Route: 065
  2. RISPERIDONE [Suspect]
     Indication: OBSESSIVE-COMPULSIVE DISORDER
     Route: 065
  3. CITALOPRAM HYDROBROMIDE [Suspect]
     Indication: OBSESSIVE-COMPULSIVE DISORDER
     Route: 065
  4. RISPERIDONE [Suspect]
     Route: 065
  5. CITALOPRAM HYDROBROMIDE [Suspect]
     Indication: SOCIAL PHOBIA
     Route: 065
  6. CITALOPRAM HYDROBROMIDE [Suspect]
     Route: 065
  7. RISPERIDONE [Suspect]
     Route: 065
  8. CITALOPRAM HYDROBROMIDE [Suspect]
     Route: 065
  9. RISPERIDONE [Suspect]
     Indication: PSYCHOTIC DISORDER
     Route: 065
  10. RISPERIDONE [Suspect]
     Route: 065
  11. RISPERIDONE [Suspect]
     Route: 065
  12. RISPERIDONE [Suspect]
     Indication: SOCIAL PHOBIA
     Route: 065
  13. RISPERIDONE [Suspect]
     Route: 065
  14. CITALOPRAM HYDROBROMIDE [Suspect]
     Indication: PSYCHOTIC DISORDER
     Route: 065
  15. CITALOPRAM HYDROBROMIDE [Suspect]
     Route: 065

REACTIONS (7)
  - WEIGHT DECREASED [None]
  - SUICIDE ATTEMPT [None]
  - ANXIETY [None]
  - DRUG DOSE OMISSION [None]
  - SUICIDAL IDEATION [None]
  - DYSTONIA [None]
  - INAPPROPRIATE SCHEDULE OF DRUG ADMINISTRATION [None]
